FAERS Safety Report 21608664 (Version 2)
Quarter: 2022Q4

REPORT INFORMATION
  Report Type: Spontaneous
  Country: GB (occurrence: GB)
  Receive Date: 20221117
  Receipt Date: 20221128
  Transmission Date: 20230113
  Serious: Yes (Death, Life-Threatening, Other)
  Sender: FDA-Public Use
  Company Number: GB-MHRA-MED-202211120033070060-ZQGSM

PATIENT
  Age: 30 Year
  Sex: Male
  Weight: 96 kg

DRUGS (1)
  1. ATORVASTATIN [Suspect]
     Active Substance: ATORVASTATIN
     Indication: Blood cholesterol abnormal
     Dosage: 10 MILLIGRAM, QD (10MG ONCE A DAY;)
     Route: 065
     Dates: start: 20210901, end: 20211001

REACTIONS (1)
  - Motor neurone disease [Fatal]

NARRATIVE: CASE EVENT DATE: 20211003
